FAERS Safety Report 7444635-0 (Version None)
Quarter: 2011Q2

REPORT INFORMATION
  Report Type: 
  Country: None (occurrence: None)
  Receive Date: 20110429
  Receipt Date: 20110426
  Transmission Date: 20111010
  Serious: No
  Sender: FDA-Public Use
  Company Number: US-PFIZER INC-2011090640

PATIENT
  Sex: Female

DRUGS (2)
  1. PRISTIQ [Suspect]
     Dosage: 50 MG, UNK
  2. EFFEXOR XR [Suspect]
     Dosage: UNK

REACTIONS (5)
  - DRUG INEFFECTIVE [None]
  - FEELING JITTERY [None]
  - NAUSEA [None]
  - DIZZINESS [None]
  - HEADACHE [None]
